FAERS Safety Report 6132778-3 (Version None)
Quarter: 2009Q1

REPORT INFORMATION
  Report Type: 
  Country: None (occurrence: None)
  Receive Date: 20090326
  Receipt Date: 20090317
  Transmission Date: 20090719
  Serious: Yes (Other)
  Sender: FDA-Public Use
  Company Number: US-WYE-H07791109

PATIENT
  Sex: Female

DRUGS (3)
  1. PRISTIQ [Suspect]
     Indication: MAJOR DEPRESSION
     Route: 048
     Dates: start: 20090101, end: 20090116
  2. PRISTIQ [Suspect]
     Indication: ANXIETY
  3. ATIVAN [Concomitant]

REACTIONS (3)
  - DRUG INEFFECTIVE [None]
  - MEDICATION RESIDUE [None]
  - SUICIDAL IDEATION [None]
